FAERS Safety Report 17749392 (Version 2)
Quarter: 2020Q2

REPORT INFORMATION
  Report Type: Spontaneous
  Country: US (occurrence: US)
  Receive Date: 20200506
  Receipt Date: 20200618
  Transmission Date: 20200714
  Serious: Yes (Death)
  Sender: FDA-Public Use
  Company Number: US-HORIZON-RAV-0150-2020

PATIENT
  Age: 38 Year
  Sex: Male

DRUGS (1)
  1. RAVICTI [Suspect]
     Active Substance: GLYCEROL PHENYLBUTYRATE
     Indication: ORNITHINE TRANSCARBAMOYLASE DEFICIENCY
     Dosage: 6ML THREE TIMES A DAY
     Route: 048

REACTIONS (1)
  - Injury [Fatal]

NARRATIVE: CASE EVENT DATE: 20200425
